FAERS Safety Report 19999543 (Version 2)
Quarter: 2021Q4

REPORT INFORMATION
  Report Type: Spontaneous
  Country: IT (occurrence: IT)
  Receive Date: 20211027
  Receipt Date: 20211116
  Transmission Date: 20220303
  Serious: Yes (Life-Threatening, Other)
  Sender: FDA-Public Use
  Company Number: IT-CELLTRION INC.-2021IT014484

PATIENT

DRUGS (4)
  1. RITUXIMAB [Suspect]
     Active Substance: RITUXIMAB
     Indication: Immunoadsorption therapy
     Dosage: 4 DOSES IN TWO WEEKS
     Route: 065
  2. ENOXIMONE [Concomitant]
     Active Substance: ENOXIMONE
     Dosage: 2-2.5 MCG/KG/MIN
     Route: 042
  3. HUMAN IMMUNOGLOBULIN G [Concomitant]
     Active Substance: HUMAN IMMUNOGLOBULIN G
  4. LAPINE T-LYMPHOCYTE IMMUNE GLOBULIN [Concomitant]
     Active Substance: LAPINE T-LYMPHOCYTE IMMUNE GLOBULIN

REACTIONS (6)
  - Pulse absent [Unknown]
  - Supraventricular tachycardia [Unknown]
  - Transient ischaemic attack [Recovered/Resolved]
  - Sepsis [Recovered/Resolved]
  - Drug effective for unapproved indication [Unknown]
  - Off label use [Unknown]
